FAERS Safety Report 11091284 (Version 2)
Quarter: 2015Q2

REPORT INFORMATION
  Report Type: Spontaneous
  Country: MX (occurrence: MX)
  Receive Date: 20150505
  Receipt Date: 20150512
  Transmission Date: 20150821
  Serious: Yes (Hospitalization, Other)
  Sender: FDA-Public Use
  Company Number: MX-GLAXOSMITHKLINE-MX2015GSK059216

PATIENT
  Age: 67 Year
  Sex: Male

DRUGS (5)
  1. DOXORUBICIN [Concomitant]
     Active Substance: DOXORUBICIN
     Indication: PRODUCT USED FOR UNKNOWN INDICATION
  2. RANITIDINE [Concomitant]
     Active Substance: RANITIDINE\RANITIDINE HYDROCHLORIDE
     Dosage: UNK
  3. ZOFRAN [Suspect]
     Active Substance: ONDANSETRON HYDROCHLORIDE
     Indication: PLASMA CELL MYELOMA
     Dosage: UNK
     Dates: start: 20150310
  4. OMEPRAZOLE. [Concomitant]
     Active Substance: OMEPRAZOLE
     Dosage: UNK
  5. BORTEZOMIB [Concomitant]
     Active Substance: BORTEZOMIB

REACTIONS (3)
  - Bacteraemia [Recovered/Resolved]
  - Suspected transmission of an infectious agent via product [Recovered/Resolved]
  - Product quality issue [Unknown]

NARRATIVE: CASE EVENT DATE: 20150311
